FAERS Safety Report 13070971 (Version 2)
Quarter: 2017Q3

REPORT INFORMATION
  Report Type: Report from Study
  Country: US (occurrence: US)
  Receive Date: 20161229
  Receipt Date: 20170825
  Transmission Date: 20171127
  Serious: No
  Sender: FDA-Public Use
  Company Number: PHHY2016US176137

PATIENT
  Age: 48 Year
  Sex: Male

DRUGS (2)
  1. GILENYA [Suspect]
     Active Substance: FINGOLIMOD HYDROCHLORIDE
     Indication: MULTIPLE SCLEROSIS
     Dosage: UNK UNK, QD
     Route: 048
  2. WELLBUTRIN [Concomitant]
     Active Substance: BUPROPION HYDROCHLORIDE
     Indication: DEPRESSION
     Dosage: UNK
     Route: 065
     Dates: start: 20160929

REACTIONS (4)
  - Vitamin D deficiency [Unknown]
  - White blood cell count decreased [Unknown]
  - Arthralgia [Unknown]
  - Erectile dysfunction [Unknown]

NARRATIVE: CASE EVENT DATE: 20160425
